FAERS Safety Report 5931168-3 (Version None)
Quarter: 2008Q4

REPORT INFORMATION
  Report Type: 
  Country: None (occurrence: None)
  Receive Date: 20081027
  Receipt Date: 20081017
  Transmission Date: 20090506
  Serious: Yes (Other)
  Sender: FDA-Public Use
  Company Number: PHHY2008GB25661

PATIENT
  Sex: Male

DRUGS (1)
  1. NEORAL [Suspect]
     Indication: NEURODERMATITIS

REACTIONS (2)
  - CYSTOSCOPY [None]
  - URETHRAL DILATATION [None]
